FAERS Safety Report 9778613 (Version 1)
Quarter: 2013Q4

REPORT INFORMATION
  Report Type: Spontaneous
  Country: US (occurrence: None)
  Receive Date: 20131220
  Receipt Date: 20131220
  Transmission Date: 20140711
  Serious: Yes (Hospitalization)
  Sender: FDA-Public Use
  Company Number: None

PATIENT
  Age: 66 Year
  Sex: Male
  Weight: 76.2 kg

DRUGS (3)
  1. ERLOTINIB [Suspect]
     Indication: NON-SMALL CELL LUNG CANCER
     Dates: start: 20130925, end: 20131001
  2. MLN8237 [Suspect]
     Indication: NON-SMALL CELL LUNG CANCER
     Dosage: 50MG BID, D1-7, Q21 DAYS
     Dates: start: 20130925, end: 20131001
  3. DOXYCYCLINE [Concomitant]

REACTIONS (4)
  - Chills [None]
  - Confusional state [None]
  - Febrile neutropenia [None]
  - Pancytopenia [None]
